FAERS Safety Report 12943073 (Version 3)
Quarter: 2016Q4

REPORT INFORMATION
  Report Type: Report from Study
  Country: US (occurrence: US)
  Receive Date: 20161115
  Receipt Date: 20161209
  Transmission Date: 20170207
  Serious: Yes (Other)
  Sender: FDA-Public Use
  Company Number: US-GILEAD-2016-0243183

PATIENT
  Age: 52 Year
  Sex: Male

DRUGS (4)
  1. FUROSEMIDE. [Concomitant]
     Active Substance: FUROSEMIDE
  2. AMBRISENTAN [Suspect]
     Active Substance: AMBRISENTAN
     Indication: PRODUCT USED FOR UNKNOWN INDICATION
     Dosage: 5 MG, UNK
     Route: 065
     Dates: start: 20130830
  3. NADOLOL. [Concomitant]
     Active Substance: NADOLOL
  4. PRADAXA [Concomitant]
     Active Substance: DABIGATRAN ETEXILATE MESYLATE

REACTIONS (9)
  - Terminal state [Unknown]
  - Renal disorder [Unknown]
  - Splenomegaly [Unknown]
  - Depression [Unknown]
  - Neuropathy peripheral [Unknown]
  - Angiopathy [Unknown]
  - Portal hypertension [Unknown]
  - Mental disorder [Unknown]
  - Hepatic failure [Not Recovered/Not Resolved]
